FAERS Safety Report 8348267 (Version 3)
Quarter: 2013Q2

REPORT INFORMATION
  Report Type: Spontaneous
  Country: US (occurrence: None)
  Receive Date: 20111220
  Receipt Date: 20121227
  Transmission Date: 20140414
  Serious: Yes (Life-Threatening, Hospitalization, Other)
  Sender: FDA-Public Use
  Company Number: PHEH2011US06816

PATIENT
  Age: 58 Year
  Sex: Female

DRUGS (4)
  1. MYFORTIC [Suspect]
     Indication: RENAL TRANSPLANT
     Route: 048
     Dates: start: 2006
  2. MYFORTIC [Suspect]
     Route: 048
     Dates: start: 2006
  3. TACROLIMUS (TACROLIMUS) [Concomitant]
  4. PREDNISONE (PREDNISONE) [Concomitant]

REACTIONS (11)
  - CLOSTRIDIUM DIFFICILE COLITIS [None]
  - Infection [None]
  - Sepsis [None]
  - Pancytopenia [None]
  - Kidney transplant rejection [None]
  - Diarrhoea [None]
  - Pyrexia [None]
  - Abdominal pain [None]
  - Weight decreased [None]
  - Electrolyte imbalance [None]
  - Colitis [None]
